FAERS Safety Report 16293541 (Version 2)
Quarter: 2019Q3

REPORT INFORMATION
  Report Type: Spontaneous
  Country: CA (occurrence: CA)
  Receive Date: 20190509
  Receipt Date: 20190903
  Transmission Date: 20191004
  Serious: Yes (Disabling)
  Sender: FDA-Public Use
  Company Number: CA-SA-2019SA121628

PATIENT
  Sex: Female
  Weight: 76.2 kg

DRUGS (14)
  1. CITALOPRAM HYDROBROMIDE. [Concomitant]
     Active Substance: CITALOPRAM HYDROBROMIDE
     Indication: PRODUCT USED FOR UNKNOWN INDICATION
     Dosage: 10 MG
     Route: 065
  2. METHOTREXATE. [Suspect]
     Active Substance: METHOTREXATE
     Dosage: 10 MG, QW
     Route: 048
  3. CLOBETASOL PROPIONATE. [Concomitant]
     Active Substance: CLOBETASOL PROPIONATE
     Indication: PRODUCT USED FOR UNKNOWN INDICATION
     Route: 061
  4. ESCITALOPRAM OXALATE. [Concomitant]
     Active Substance: ESCITALOPRAM OXALATE
     Indication: PRODUCT USED FOR UNKNOWN INDICATION
     Route: 065
  5. PANTOPRAZOLE MAGNESIUM [Concomitant]
     Active Substance: PANTOPRAZOLE MAGNESIUM
     Indication: PRODUCT USED FOR UNKNOWN INDICATION
     Dosage: 1 DF, QD
     Route: 065
  6. ARAVA [Concomitant]
     Active Substance: LEFLUNOMIDE
     Indication: PRODUCT USED FOR UNKNOWN INDICATION
     Route: 065
  7. NAPROXEN. [Concomitant]
     Active Substance: NAPROXEN
     Indication: PRODUCT USED FOR UNKNOWN INDICATION
     Dosage: 250 MG
     Route: 048
  8. LEFLUNOMIDE. [Suspect]
     Active Substance: LEFLUNOMIDE
     Indication: RHEUMATOID ARTHRITIS
     Dosage: 10 MG, QD
     Route: 048
  9. HUMIRA [Suspect]
     Active Substance: ADALIMUMAB
     Indication: RHEUMATOID ARTHRITIS
     Dosage: 40 MG, UNK
     Route: 058
     Dates: start: 2011, end: 2012
  10. CALCIUM CITRATE;MAGNESIUM CITRATE [Concomitant]
     Indication: PRODUCT USED FOR UNKNOWN INDICATION
     Route: 065
  11. LEUCOVORIN [CALCIUM FOLINATE] [Suspect]
     Active Substance: LEUCOVORIN
     Indication: PRODUCT USED FOR UNKNOWN INDICATION
     Dosage: 5 MG, QW
     Route: 048
  12. SULFASALAZINE. [Suspect]
     Active Substance: SULFASALAZINE
     Indication: RHEUMATOID ARTHRITIS
     Dosage: UNK UNK, UNK
     Route: 065
  13. PLAQUENIL [Suspect]
     Active Substance: HYDROXYCHLOROQUINE SULFATE
     Indication: PRODUCT USED FOR UNKNOWN INDICATION
     Dosage: UNK UNK, UNK
     Route: 065
  14. METHOTREXATE. [Suspect]
     Active Substance: METHOTREXATE
     Indication: RHEUMATOID ARTHRITIS
     Dosage: 10 MG, QW
     Route: 058

REACTIONS (17)
  - Arthropathy [Unknown]
  - Psoriatic arthropathy [Unknown]
  - Sensitivity to weather change [Unknown]
  - Vomiting [Unknown]
  - Disability [Unknown]
  - Joint noise [Unknown]
  - Vaginal haemorrhage [Unknown]
  - Rheumatoid arthritis [Unknown]
  - Mobility decreased [Unknown]
  - Weight increased [Unknown]
  - Loss of personal independence in daily activities [Unknown]
  - Hypotension [Unknown]
  - Dizziness [Unknown]
  - Therapeutic product effect decreased [Unknown]
  - Nausea [Unknown]
  - Headache [Unknown]
  - Gastrointestinal disorder [Unknown]

NARRATIVE: CASE EVENT DATE: 2011
